FAERS Safety Report 20936986 (Version 2)
Quarter: 2022Q2

REPORT INFORMATION
  Report Type: Spontaneous
  Country: FR (occurrence: FR)
  Receive Date: 20220609
  Receipt Date: 20220622
  Transmission Date: 20220721
  Serious: Yes (Other)
  Sender: FDA-Public Use
  Company Number: FR-AFSSAPS-AVNT20220416

PATIENT
  Age: 49 Year
  Sex: Female

DRUGS (1)
  1. OXYCODONE [Suspect]
     Active Substance: OXYCODONE
     Indication: Product used for unknown indication
     Dosage: 240 MILLIGRAM, ONCE A DAY (30 MG LP MATIN ET SOIR)
     Route: 048

REACTIONS (1)
  - Drug use disorder [Recovering/Resolving]
